FAERS Safety Report 9760337 (Version 1)
Quarter: 2013Q4

REPORT INFORMATION
  Report Type: Spontaneous
  Country: US (occurrence: US)
  Receive Date: 20131216
  Receipt Date: 20131216
  Transmission Date: 20140711
  Serious: No
  Sender: FDA-Public Use
  Company Number: US-GILEAD-2010-0029351

PATIENT
  Age: 78 Year
  Sex: Female

DRUGS (6)
  1. LETAIRIS [Suspect]
     Indication: PULMONARY ARTERIAL HYPERTENSION
     Route: 048
     Dates: start: 20100420, end: 201005
  2. LETAIRIS [Suspect]
     Route: 048
     Dates: start: 201005
  3. BISOPROLOL [Concomitant]
  4. ADVAIR [Concomitant]
  5. WARFARIN [Concomitant]
  6. CARVEDILOL [Concomitant]

REACTIONS (2)
  - Hypokalaemia [Recovered/Resolved]
  - Tachycardia [Recovered/Resolved]
